FAERS Safety Report 16705851 (Version 5)
Quarter: 2019Q3

REPORT INFORMATION
  Report Type: Spontaneous
  Country: US (occurrence: US)
  Receive Date: 20190815
  Receipt Date: 20190917
  Transmission Date: 20191004
  Serious: Yes (Hospitalization)
  Sender: FDA-Public Use
  Company Number: US-GW PHARMA-201908USGW2831

PATIENT

DRUGS (11)
  1. LAMICTAL [Suspect]
     Active Substance: LAMOTRIGINE
     Dosage: 150 MILLIGRAM, BID
     Route: 065
     Dates: start: 20190809, end: 20190829
  2. ONFI [Suspect]
     Active Substance: CLOBAZAM
     Dosage: 5 MILLIGRAM, QD (QHS).
     Route: 065
     Dates: start: 20190628, end: 20190704
  3. EPIDIOLEX [Suspect]
     Active Substance: CANNABIDIOL
     Dosage: 4.97 MG/KG, 220 MILLIGRAM, BID
     Route: 048
     Dates: start: 20190712, end: 2019
  4. ONFI [Suspect]
     Active Substance: CLOBAZAM
     Dosage: 15 MILLIGRAM, QD (5MG QAM+10 MG QHS)
     Route: 065
     Dates: start: 20190614, end: 20190621
  5. ONFI [Suspect]
     Active Substance: CLOBAZAM
     Dosage: 5 MILLIGRAM, BID
     Route: 065
     Dates: start: 20190621, end: 20190628
  6. LAMICTAL [Suspect]
     Active Substance: LAMOTRIGINE
     Dosage: DOSE DECREASED AND WILL DISCONTINUE
     Route: 065
     Dates: start: 20190830, end: 20190913
  7. EPIDIOLEX [Suspect]
     Active Substance: CANNABIDIOL
     Dosage: 9.94 MG/KG, 440 MILLIGRAM, BID
     Route: 048
     Dates: start: 20190702, end: 20190711
  8. LAMICTAL [Suspect]
     Active Substance: LAMOTRIGINE
     Indication: SEIZURE
     Dosage: 300 MILLIGRAM, BID
     Route: 065
     Dates: start: 2019, end: 20190808
  9. EPIDIOLEX [Suspect]
     Active Substance: CANNABIDIOL
     Indication: LENNOX-GASTAUT SYNDROME
     Dosage: 4.97 MG/KG, 220 MILLIGRAM, BID
     Route: 048
     Dates: start: 20190625, end: 20190701
  10. EPIDIOLEX [Suspect]
     Active Substance: CANNABIDIOL
     Dosage: UNK
     Route: 048
     Dates: start: 2019
  11. ONFI [Suspect]
     Active Substance: CLOBAZAM
     Indication: SEIZURE
     Dosage: 10 MILLIGRAM, BID. STOPE DATE 25 JUN 2019
     Route: 065
     Dates: start: 2019, end: 20190614

REACTIONS (3)
  - Hepatic enzyme increased [Recovering/Resolving]
  - Seizure [Unknown]
  - Product dose omission [Recovered/Resolved]

NARRATIVE: CASE EVENT DATE: 20190711
